FAERS Safety Report 6057007-0 (Version None)
Quarter: 2009Q1

REPORT INFORMATION
  Report Type: 
  Country: None (occurrence: None)
  Receive Date: 20090126
  Receipt Date: 20090107
  Transmission Date: 20090719
  Serious: Yes (Death)
  Sender: FDA-Public Use
  Company Number: B0553670A

PATIENT
  Age: 27 Year
  Sex: Female

DRUGS (6)
  1. BUPROPION HCL [Suspect]
  2. DILTIAZEM HCL [Suspect]
     Dosage: ORAL
     Route: 048
  3. CARBAMAZEPINE [Suspect]
  4. ARIPIPRAZOLE [Suspect]
  5. TOPIRAMATE [Suspect]
  6. TRAZODONE HCL [Suspect]

REACTIONS (2)
  - CARDIO-RESPIRATORY ARREST [None]
  - COMPLETED SUICIDE [None]
